FAERS Safety Report 4734372-5 (Version None)
Quarter: 2005Q3

REPORT INFORMATION
  Report Type: 
  Country: None (occurrence: None)
  Receive Date: 20050804
  Receipt Date: 20050727
  Transmission Date: 20060218
  Serious: Yes (Hospitalization)
  Sender: FDA-Public Use
  Company Number: PHBS2005CH11062

PATIENT
  Age: 18 Year
  Sex: Female

DRUGS (4)
  1. CITALOPRAM [Concomitant]
     Dosage: 20 MG/D
     Route: 065
  2. ZOPICLONE [Suspect]
     Dosage: 7.5 MG/D
     Route: 065
  3. ZOPICLONE [Suspect]
     Dosage: 225 MG, ONCE/SINGLE
     Route: 065
  4. THIORIDAZINE HCL [Suspect]
     Indication: DEPRESSION
     Dosage: 50 MG/D
     Route: 065

REACTIONS (1)
  - SUICIDE ATTEMPT [None]
